FAERS Safety Report 5926804-1 (Version None)
Quarter: 2008Q4

REPORT INFORMATION
  Report Type: 
  Country: None (occurrence: None)
  Receive Date: 20081017
  Receipt Date: 20081011
  Transmission Date: 20090506
  Serious: Yes (Other)
  Sender: FDA-Public Use
  Company Number: 2008SP020741

PATIENT
  Age: 52 Year
  Sex: Female

DRUGS (2)
  1. INTRON A [Suspect]
     Indication: MALIGNANT MELANOMA
  2. PAXIL [Concomitant]

REACTIONS (2)
  - CATATONIA [None]
  - EXTRAPYRAMIDAL DISORDER [None]
